FAERS Safety Report 5163189-5 (Version None)
Quarter: 2006Q4

REPORT INFORMATION
  Report Type: 
  Country: None (occurrence: None)
  Receive Date: 20061204
  Receipt Date: 20060607
  Transmission Date: 20070319
  Serious: Yes (Death, Hospitalization, Other)
  Sender: FDA-Public Use
  Company Number: US-BAYER-200613983BWH

PATIENT
  Age: 62 Year
  Sex: Male
  Weight: 78 kg

DRUGS (9)
  1. SORAFENIB [Suspect]
     Indication: METASTATIC RENAL CELL CARCINOMA
     Dosage: TOTAL DAILY DOSE: 400 MG  UNIT DOSE: 200 MG
     Route: 048
     Dates: start: 20050901, end: 20051001
  2. SORAFENIB [Suspect]
     Dosage: TOTAL DAILY DOSE: 800 MG  UNIT DOSE: 200 MG
     Route: 048
     Dates: start: 20051001, end: 20060521
  3. ASCORBIC ACID [Concomitant]
     Dosage: TOTAL DAILY DOSE: 3000 MG  UNIT DOSE: 500 MG
     Route: 048
  4. ASPIRIN [Concomitant]
     Dosage: TOTAL DAILY DOSE: 325 MG  UNIT DOSE: 325 MG
  5. ATENOLOL [Concomitant]
     Dosage: TOTAL DAILY DOSE: 50 MG  UNIT DOSE: 50 MG
  6. TYLENOL PM [Concomitant]
  7. VICODIN [Concomitant]
     Indication: PAIN
  8. MULTIVITAMINS WITH MINERALS [Concomitant]
  9. COMPAZINE [Concomitant]
     Route: 048

REACTIONS (16)
  - ANAEMIA [None]
  - ASCITES [None]
  - BACTERIAL SEPSIS [None]
  - BLOOD ALKALINE PHOSPHATASE INCREASED [None]
  - CARDIAC FAILURE CONGESTIVE [None]
  - CARDIOMYOPATHY [None]
  - DILATATION ATRIAL [None]
  - DILATATION VENTRICULAR [None]
  - DYSPNOEA [None]
  - EJECTION FRACTION DECREASED [None]
  - FAECES DISCOLOURED [None]
  - GASTRIC ULCER [None]
  - GASTROINTESTINAL HAEMORRHAGE [None]
  - JUGULAR VEIN DISTENSION [None]
  - PYREXIA [None]
  - RENAL CELL CARCINOMA STAGE UNSPECIFIED [None]
